FAERS Safety Report 4294237-2 (Version None)
Quarter: 2004Q1

REPORT INFORMATION
  Report Type: 
  Country: None (occurrence: None)
  Receive Date: 20040211
  Receipt Date: 20040202
  Transmission Date: 20041129
  Serious: Yes (Other)
  Sender: FDA-Public Use
  Company Number: US-JNJFOC-20040200867

PATIENT
  Age: 58 Year
  Sex: Male
  Weight: 97.5234 kg

DRUGS (6)
  1. ULTRAM [Suspect]
     Indication: BACK PAIN
     Dosage: TAKES TWO TO THREE TABLETS PER DAY
     Dates: start: 20030101
  2. TEVETEN [Concomitant]
  3. ALLEGRA (FEXOEFNADINE HYDROCHLORIDE) [Concomitant]
  4. ZOCOR [Concomitant]
  5. CLINORIL [Concomitant]
  6. TOPROL (METOPROLOL SUCCINATE) [Concomitant]

REACTIONS (2)
  - NASOPHARYNGITIS [None]
  - PNEUMONIA [None]
